FAERS Safety Report 10294520 (Version 1)
Quarter: 2014Q3

REPORT INFORMATION
  Report Type: Spontaneous
  Country: DE (occurrence: DE)
  Receive Date: 20140710
  Receipt Date: 20140710
  Transmission Date: 20150326
  Serious: Yes (Congenital Anomaly)
  Sender: FDA-Public Use
  Company Number: GXKR2014DE002504

PATIENT

DRUGS (6)
  1. CELEBREX [Suspect]
     Active Substance: CELECOXIB
     Indication: SPONDYLOLISTHESIS
     Dosage: 200 [MG/D ]
     Route: 064
  2. TETRAZEPAM [Suspect]
     Active Substance: TETRAZEPAM
     Indication: HYPOTONIA
     Dosage: 50 [MG/D ]
     Route: 064
  3. SALBUTAMOL [Suspect]
     Active Substance: ALBUTEROL
     Indication: ASTHMA
     Dosage: ONLY IF REQUIRED
     Route: 064
     Dates: start: 20130327, end: 20130618
  4. IBUPROFEN. [Suspect]
     Active Substance: IBUPROFEN
     Indication: SPONDYLOLISTHESIS
     Dosage: 2400 [MG/D ]
     Route: 064
  5. VIANI [Suspect]
     Active Substance: FLUTICASONE PROPIONATE\SALMETEROL XINAFOATE
     Indication: ASTHMA
     Route: 064
  6. FOLIO FORTE [Concomitant]
     Active Substance: FOLIC ACID\VITAMINS
     Indication: PROPHYLAXIS OF NEURAL TUBE DEFECT
     Dosage: 0.8 [MG/D ]
     Route: 064
     Dates: start: 20130517, end: 20140109

REACTIONS (2)
  - Ventricular septal defect [Recovered/Resolved with Sequelae]
  - Transposition of the great vessels [Recovered/Resolved with Sequelae]
